FAERS Safety Report 8137954-6 (Version None)
Quarter: 2012Q1

REPORT INFORMATION
  Report Type: 
  Country: None (occurrence: None)
  Receive Date: 20120103
  Receipt Date: 20110904
  Transmission Date: 20120608
  Serious: No
  Sender: FDA-Public Use
  Company Number: AE-2011-001335

PATIENT
  Age: 60 Year
  Sex: Female
  Weight: 77.1115 kg

DRUGS (8)
  1. SPIRONOLACTONE [Concomitant]
  2. CALCIUM CARBONATE [Concomitant]
  3. CALCITRIOL [Concomitant]
  4. RIBAVIRIN [Concomitant]
  5. PEGASYS [Concomitant]
  6. LEVOTHYROXINE SODIUM [Concomitant]
  7. LASIX (LASIX /SCH/) [Concomitant]
  8. INCIVEK [Suspect]
     Dosage: (3 IN 1 D), ORAL
     Route: 048
     Dates: start: 20110806

REACTIONS (3)
  - PAIN [None]
  - INFLUENZA LIKE ILLNESS [None]
  - HEADACHE [None]
